FAERS Safety Report 6793846-6 (Version None)
Quarter: 2010Q2

REPORT INFORMATION
  Report Type: 
  Country: None (occurrence: None)
  Receive Date: 20100624
  Receipt Date: 20090310
  Transmission Date: 20101027
  Serious: Yes (Other)
  Sender: FDA-Public Use
  Company Number: US-PFIZER INC-2009181107

PATIENT
  Sex: Female

DRUGS (11)
  1. PROVERA [Suspect]
     Indication: OSTEOPOROSIS PROPHYLAXIS
     Dosage: UNK
     Route: 048
     Dates: start: 19920101, end: 19970101
  2. PROVERA [Suspect]
     Indication: PROPHYLAXIS
  3. MEDROXYPROGESTERONE ACETATE [Suspect]
     Indication: OSTEOPOROSIS PROPHYLAXIS
     Dosage: UNK
     Route: 048
     Dates: start: 19960101, end: 20010101
  4. MEDROXYPROGESTERONE ACETATE [Suspect]
     Indication: PROPHYLAXIS
  5. PREMPRO [Suspect]
     Indication: OSTEOPOROSIS PROPHYLAXIS
     Dosage: UNK
     Dates: start: 19970101, end: 20020101
  6. PREMPRO [Suspect]
     Indication: PROPHYLAXIS
  7. PREMARIN [Suspect]
     Indication: OSTEOPOROSIS PROPHYLAXIS
     Dosage: UNK
     Dates: start: 19920101, end: 19970101
  8. PREMARIN [Suspect]
     Indication: PROPHYLAXIS
  9. ESTRATEST [Suspect]
     Indication: OSTEOPOROSIS PROPHYLAXIS
     Dosage: UNK
     Dates: start: 20010101
  10. ESTRATEST [Suspect]
     Indication: PROPHYLAXIS
  11. LIPITOR [Concomitant]
     Indication: HYPERCHOLESTEROLAEMIA

REACTIONS (1)
  - BREAST CANCER FEMALE [None]
